FAERS Safety Report 13473604 (Version 5)
Quarter: 2017Q4

REPORT INFORMATION
  Report Type: Spontaneous
  Country: US (occurrence: US)
  Receive Date: 20170424
  Receipt Date: 20171022
  Transmission Date: 20180320
  Serious: Yes (Other)
  Sender: FDA-Public Use
  Company Number: US-TEVA-761440ACC

PATIENT
  Age: 50 Year
  Sex: Female

DRUGS (3)
  1. PARAGARD T 380A [Suspect]
     Active Substance: COPPER
     Indication: CONTRACEPTION
     Dates: start: 20100929, end: 20161004
  2. DOXYCYCLINE. [Concomitant]
     Active Substance: DOXYCYCLINE
  3. PREMARIN [Concomitant]
     Active Substance: ESTROGENS, CONJUGATED

REACTIONS (15)
  - Device dislocation [Recovered/Resolved]
  - Pelvic pain [Unknown]
  - Gastrointestinal hypomotility [Unknown]
  - Discomfort [Unknown]
  - Embedded device [Recovered/Resolved]
  - Pain [Unknown]
  - Injury [Unknown]
  - Device breakage [Recovered/Resolved]
  - Abdominal distension [Unknown]
  - Dysuria [Unknown]
  - Loss of personal independence in daily activities [Unknown]
  - Device expulsion [Unknown]
  - Vaginal discharge [Unknown]
  - Complication associated with device [Recovered/Resolved]
  - Abdominal pain upper [Unknown]

NARRATIVE: CASE EVENT DATE: 20160921
